FAERS Safety Report 5425789-4 (Version None)
Quarter: 2007Q3

REPORT INFORMATION
  Report Type: 
  Country: None (occurrence: None)
  Receive Date: 20070827
  Receipt Date: 20070724
  Transmission Date: 20080115
  Serious: Yes (Death)
  Sender: FDA-Public Use
  Company Number: KR-BAYER-200714319GDS

PATIENT
  Age: 42 Year
  Sex: Female

DRUGS (1)
  1. ASPIRIN [Suspect]
     Indication: DRUG USE FOR UNKNOWN INDICATION
     Route: 048
     Dates: start: 20070617

REACTIONS (2)
  - DRUG TOXICITY [None]
  - MYOCARDIAL INFARCTION [None]
